FAERS Safety Report 25411803 (Version 1)
Quarter: 2025Q2

REPORT INFORMATION
  Report Type: Spontaneous
  Country: US (occurrence: US)
  Receive Date: 20250609
  Receipt Date: 20250609
  Transmission Date: 20250717
  Serious: No
  Sender: ITALFARMACO SPA
  Company Number: US-ITALFARMACO SPA-2178323

PATIENT
  Age: 17 Year
  Sex: Male
  Weight: 80.02 kg

DRUGS (14)
  1. DUVYZAT [Suspect]
     Active Substance: GIVINOSTAT
     Indication: Duchenne muscular dystrophy
     Dates: start: 20250205
  2. CARVEDILOL [Concomitant]
     Active Substance: CARVEDILOL
  3. ANDROGEL [Concomitant]
     Active Substance: TESTOSTERONE
  4. MIRALAX [Concomitant]
     Active Substance: POLYETHYLENE GLYCOL 3350
  5. OMEPRAZOLE [Concomitant]
     Active Substance: OMEPRAZOLE
  6. VITAMINS [Concomitant]
     Active Substance: VITAMINS
  7. MONTELUKAST [Concomitant]
     Active Substance: MONTELUKAST
  8. LISINOPRIL [Concomitant]
     Active Substance: LISINOPRIL
  9. KETOCONAZOLE [Concomitant]
     Active Substance: KETOCONAZOLE
  10. GABAPENTIN [Concomitant]
     Active Substance: GABAPENTIN
  11. INSPRA [Concomitant]
     Active Substance: EPLERENONE
  12. EMFLAZA [Concomitant]
     Active Substance: DEFLAZACORT
  13. VITAMIN D3 [Concomitant]
     Active Substance: CHOLECALCIFEROL
  14. CETIRIZINE [Concomitant]
     Active Substance: CETIRIZINE HYDROCHLORIDE

REACTIONS (1)
  - Blood triglycerides increased [Unknown]
